FAERS Safety Report 9376610 (Version 4)
Quarter: 2013Q3

REPORT INFORMATION
  Report Type: Spontaneous
  Country: US (occurrence: US)
  Receive Date: 20130701
  Receipt Date: 20130927
  Transmission Date: 20140515
  Serious: Yes (Other)
  Sender: FDA-Public Use
  Company Number: US-BIOGENIDEC-2013BI057878

PATIENT
  Age: 62 Year
  Sex: Female
  Weight: 78 kg

DRUGS (8)
  1. AVONEX [Suspect]
     Indication: RELAPSING-REMITTING MULTIPLE SCLEROSIS
     Route: 030
     Dates: start: 20110621
  2. AVONEX [Suspect]
     Indication: RELAPSING-REMITTING MULTIPLE SCLEROSIS
     Route: 030
     Dates: start: 20111104
  3. AVONEX [Suspect]
     Indication: RELAPSING-REMITTING MULTIPLE SCLEROSIS
     Route: 030
     Dates: start: 20130726, end: 20130913
  4. JANUMET [Concomitant]
     Route: 048
  5. LAMICTAL [Concomitant]
     Route: 048
  6. LAMICTAL [Concomitant]
     Route: 048
  7. LAMICTAL [Concomitant]
     Route: 048
  8. LEVOTHYROXINE [Concomitant]
     Route: 048

REACTIONS (7)
  - Convulsion [Recovered/Resolved]
  - Loss of consciousness [Unknown]
  - Upper limb fracture [Unknown]
  - Epilepsy [Unknown]
  - Hemiparesis [Unknown]
  - Adverse event [Unknown]
  - Pyrexia [Recovered/Resolved]
